FAERS Safety Report 20670520 (Version 2)
Quarter: 2022Q3

REPORT INFORMATION
  Report Type: Report from Study
  Country: US (occurrence: US)
  Receive Date: 20220404
  Receipt Date: 20220715
  Transmission Date: 20221027
  Serious: Yes (Other)
  Sender: FDA-Public Use
  Company Number: US-BAYER-2022A023155

PATIENT
  Age: 68 Year
  Sex: Male

DRUGS (2)
  1. STIVARGA [Suspect]
     Active Substance: REGORAFENIB
     Indication: Rectal cancer
     Dosage: 160 MG, QD 21 DAYS THEN 7 DAYS OFF
     Route: 048
     Dates: start: 20220123
  2. STIVARGA [Suspect]
     Active Substance: REGORAFENIB
     Indication: Rectal cancer
     Dosage: DAILY DOSE 160 MG
     Route: 048
     Dates: start: 20220412, end: 20220629

REACTIONS (6)
  - Neuropathy peripheral [Recovering/Resolving]
  - Pain in extremity [Recovered/Resolved]
  - Blister [Recovered/Resolved]
  - Palmar-plantar erythrodysaesthesia syndrome [Not Recovered/Not Resolved]
  - Blister [Not Recovered/Not Resolved]
  - Blister [Unknown]

NARRATIVE: CASE EVENT DATE: 20220212
